FAERS Safety Report 8921195 (Version 1)
Quarter: 2012Q4

REPORT INFORMATION
  Report Type: 
  Country: GB (occurrence: GB)
  Receive Date: 20121122
  Receipt Date: 20121122
  Transmission Date: 20130627
  Serious: Yes (Hospitalization, Other)
  Sender: FDA-Public Use
  Company Number: GB-BAXTER-2012BAX023932

PATIENT
  Age: 70 Year
  Sex: Female
  Weight: 63 kg

DRUGS (14)
  1. CYCLOPHOSPHAMIDE [Suspect]
     Indication: VASCULITIS
     Route: 042
     Dates: start: 20111212, end: 20120119
  2. CYCLOPHOSPHAMIDE [Suspect]
     Route: 042
     Dates: start: 20120119, end: 20120306
  3. MESNA [Suspect]
     Indication: BLADDER DISORDER
     Route: 042
  4. MESNA [Suspect]
     Indication: BLADDER DISORDER
     Route: 048
  5. CO-TRIMOXAZOLE [Suspect]
     Indication: PROPHYLAXIS
     Route: 048
     Dates: start: 20111205, end: 20120131
  6. ADCAL-D3 [Concomitant]
     Indication: DRUG USE FOR UNKNOWN INDICATION
     Route: 065
  7. ALENDRONATE [Concomitant]
     Indication: DRUG USE FOR UNKNOWN INDICATION
     Route: 065
  8. ATORVASTATIN [Concomitant]
     Indication: DRUG USE FOR UNKNOWN INDICATION
     Route: 065
  9. BISOPROLOL [Concomitant]
     Indication: DRUG USE FOR UNKNOWN INDICATION
     Route: 065
  10. OMEPRAZOLE [Concomitant]
     Indication: DRUG USE FOR UNKNOWN INDICATION
     Route: 065
  11. OXERUTINS [Concomitant]
     Indication: DRUG USE FOR UNKNOWN INDICATION
     Route: 065
  12. PREDNISOLONE [Concomitant]
     Indication: DRUG USE FOR UNKNOWN INDICATION
     Route: 048
  13. PREDNISOLONE [Concomitant]
     Route: 048
  14. PREDNISOLONE [Concomitant]
     Route: 048

REACTIONS (16)
  - Liver function test abnormal [Recovered/Resolved]
  - Skin exfoliation [Recovered/Resolved]
  - Erythema [Recovered/Resolved]
  - Malaise [Unknown]
  - Lip haemorrhage [Unknown]
  - Chapped lips [Unknown]
  - Rash macular [Recovered/Resolved]
  - Rash maculo-papular [Recovered/Resolved]
  - Neutropenia [Unknown]
  - Oral pain [Unknown]
  - Chills [Unknown]
  - Rash [Unknown]
  - Skin fissures [Recovered/Resolved]
  - Aphthous stomatitis [Unknown]
  - Alanine aminotransferase increased [None]
  - Blood alkaline phosphatase increased [None]
